FAERS Safety Report 26087236 (Version 1)
Quarter: 2025Q4

REPORT INFORMATION
  Report Type: Spontaneous
  Country: IN (occurrence: IN)
  Receive Date: 20251125
  Receipt Date: 20251125
  Transmission Date: 20260117
  Serious: Yes (Other)
  Sender: NOVARTIS
  Company Number: IN-002147023-NVSC2025IN180044

PATIENT
  Age: 56 Year
  Sex: Female

DRUGS (1)
  1. BROLUCIZUMAB [Suspect]
     Active Substance: BROLUCIZUMAB
     Indication: Choroidal neovascularisation
     Dosage: UNK
     Route: 065
     Dates: start: 20251007

REACTIONS (1)
  - Idiopathic orbital inflammation [Unknown]

NARRATIVE: CASE EVENT DATE: 20251116
